FAERS Safety Report 17922138 (Version 1)
Quarter: 2020Q2

REPORT INFORMATION
  Report Type: Spontaneous
  Country: US (occurrence: US)
  Receive Date: 20200621
  Receipt Date: 20200621
  Transmission Date: 20200714
  Serious: No
  Sender: FDA-Public Use
  Company Number: None

PATIENT
  Age: 42 Year
  Sex: Female
  Weight: 93 kg

DRUGS (9)
  1. ZITHMAX [Concomitant]
     Dates: start: 20200603, end: 20200607
  2. REMDESIVIR. [Suspect]
     Active Substance: REMDESIVIR
     Indication: COVID-19
     Route: 042
     Dates: start: 20200603, end: 20200603
  3. URSODIOL. [Concomitant]
     Active Substance: URSODIOL
     Dates: start: 20200603
  4. REMDESIVIR. [Suspect]
     Active Substance: REMDESIVIR
     Indication: COVID-19
     Route: 042
     Dates: start: 20200604, end: 20200608
  5. LABETADOL [Concomitant]
     Dates: start: 20200603
  6. LOVENOX [Concomitant]
     Active Substance: ENOXAPARIN SODIUM
     Dates: start: 20200604, end: 20200609
  7. INSUIN SLIDING SCALE [Concomitant]
     Dates: start: 20200603, end: 20200609
  8. ROCEPHIN [Concomitant]
     Active Substance: CEFTRIAXONE SODIUM
     Dates: start: 20200603, end: 20200607
  9. PRENATAL VITAMIN [Concomitant]
     Active Substance: VITAMINS
     Dates: start: 20200603

REACTIONS (6)
  - Gestational diabetes [None]
  - Exposure during pregnancy [None]
  - Foetal heart rate abnormal [None]
  - High risk pregnancy [None]
  - Cholestasis [None]
  - Premature labour [None]

NARRATIVE: CASE EVENT DATE: 20200613
